FAERS Safety Report 9851781 (Version 1)
Quarter: 2014Q1

REPORT INFORMATION
  Report Type: Spontaneous
  Country: JP (occurrence: JP)
  Receive Date: 20140129
  Receipt Date: 20140129
  Transmission Date: 20141002
  Serious: Yes (Other)
  Sender: FDA-Public Use
  Company Number: JP-ACCORD-021569

PATIENT
  Age: 84 Year
  Sex: Female

DRUGS (3)
  1. METHOTREXATE [Suspect]
     Indication: RHEUMATOID ARTHRITIS
     Dosage: FOR 20 YEARS
  2. PREDNISOLONE [Suspect]
     Indication: RHEUMATOID ARTHRITIS
     Dosage: FOR 20 YEARS
  3. MIZORIBINE [Suspect]
     Indication: RHEUMATOID ARTHRITIS
     Dosage: FOR 20 YEARS

REACTIONS (1)
  - Herpes zoster disseminated [Unknown]
